FAERS Safety Report 9075966 (Version 1)
Quarter: 2013Q1

REPORT INFORMATION
  Report Type: Report from Study
  Country: US (occurrence: US)
  Receive Date: 20130131
  Receipt Date: 20130131
  Transmission Date: 20140127
  Serious: No
  Sender: FDA-Public Use
  Company Number: US-ABBOTT-12P-163-1004894-00

PATIENT
  Age: 31 Year
  Sex: Male

DRUGS (2)
  1. HUMIRA [Suspect]
     Indication: JUVENILE IDIOPATHIC ARTHRITIS
     Dates: start: 2008
  2. BABY ASPIRIN [Concomitant]
     Indication: PROPHYLAXIS
     Dosage: 1 TAB DAILY

REACTIONS (4)
  - Device malfunction [Unknown]
  - Injection site reaction [Recovering/Resolving]
  - Injection site swelling [Unknown]
  - Injection site erythema [Unknown]
